FAERS Safety Report 8890433 (Version 1)
Quarter: 2012Q4

REPORT INFORMATION
  Report Type: 
  Country: US (occurrence: US)
  Receive Date: 20121106
  Receipt Date: 20121106
  Transmission Date: 20130627
  Serious: Yes (Hospitalization)
  Sender: FDA-Public Use
  Company Number: US-JUTA-2012-19069

PATIENT
  Age: 25 Year
  Sex: Male

DRUGS (2)
  1. OMEPRAZOLE (UNKNOWN) [Suspect]
     Indication: PROPHYLAXIS
     Dosage: unk
     Route: 065
  2. METHOTREXATE [Suspect]
     Indication: BONE NEOPLASM MALIGNANT
     Dosage: 12 g/m(2)
     Route: 065

REACTIONS (7)
  - Drug interaction [Recovered/Resolved]
  - Toxicity to various agents [Recovering/Resolving]
  - Grand mal convulsion [Recovered/Resolved]
  - Thrombocytopenia [Recovering/Resolving]
  - Renal impairment [Recovered/Resolved]
  - Mucosal inflammation [Recovered/Resolved]
  - Headache [Recovered/Resolved]
